FAERS Safety Report 6155515-5 (Version None)
Quarter: 2009Q2

REPORT INFORMATION
  Report Type: 
  Country: None (occurrence: None)
  Receive Date: 20090415
  Receipt Date: 20090406
  Transmission Date: 20091009
  Serious: Yes (Hospitalization)
  Sender: FDA-Public Use
  Company Number: FR-JNJFOC-20090303078

PATIENT
  Sex: Male

DRUGS (18)
  1. SPORANOX [Suspect]
     Route: 048
  2. SPORANOX [Suspect]
     Indication: ASPERGILLOSIS
     Route: 048
  3. OFLOXACIN [Suspect]
     Indication: ASPERGILLOSIS
     Route: 048
  4. ZECLAR [Suspect]
     Indication: ASPERGILLOSIS
     Dosage: 500 MG IN THE MORNING, 250 MG AT MIDDAY AND 250 MG IN THE EVENING)
     Route: 048
  5. SYMBICORT [Suspect]
     Indication: BRONCHOPNEUMOPATHY
     Route: 045
  6. SERETIDE [Suspect]
     Indication: BRONCHOPNEUMOPATHY
     Route: 045
  7. SPIRIVA [Concomitant]
     Route: 065
  8. BRICANYL [Concomitant]
     Route: 065
  9. BRONCHODUAL [Concomitant]
     Route: 065
  10. THEOSTAT [Concomitant]
     Route: 065
  11. EFFEXOR [Concomitant]
     Route: 065
  12. XANAX [Concomitant]
     Route: 065
  13. LAROXYL [Concomitant]
     Route: 065
  14. ATARAX [Concomitant]
     Route: 065
  15. IMOVANE [Concomitant]
     Route: 065
  16. NOVONORM [Concomitant]
     Route: 065
  17. TANAKAN [Concomitant]
     Route: 065
  18. ACTONEL [Concomitant]
     Route: 065

REACTIONS (12)
  - ADRENAL INSUFFICIENCY [None]
  - ALBUMIN GLOBULIN RATIO ABNORMAL [None]
  - AMYOTROPHY [None]
  - ASCITES [None]
  - DYSPNOEA [None]
  - LIVER FUNCTION TEST ABNORMAL [None]
  - MUSCULAR WEAKNESS [None]
  - MYELOCYTOSIS [None]
  - OEDEMA PERIPHERAL [None]
  - RENAL FAILURE [None]
  - RHABDOMYOLYSIS [None]
  - WEIGHT INCREASED [None]
